FAERS Safety Report 15347866 (Version 1)
Quarter: 2018Q3

REPORT INFORMATION
  Report Type: Spontaneous
  Country: IT (occurrence: IT)
  Receive Date: 20180904
  Receipt Date: 20180904
  Transmission Date: 20181010
  Serious: Yes (Other)
  Sender: FDA-Public Use
  Company Number: IT-SILVERGATE PHARMACEUTICALS, INC.-2018SIL00047

PATIENT
  Age: 53 Year
  Sex: Male

DRUGS (8)
  1. CYTARABINE. [Suspect]
     Active Substance: CYTARABINE
     Dosage: 50 MG, 2X/MONTH (EVERY 15 DAYS) X 4
     Route: 065
  2. METHOTREXATE. [Suspect]
     Active Substance: METHOTREXATE
     Dosage: 5000 MG/M2, 1X/DAY (OVER 24 HOURS)
  3. CYTARABINE. [Suspect]
     Active Substance: CYTARABINE
     Dosage: 50 MG, UNK, EVERY 14 DAYS X 6
     Route: 037
  4. DEXAMETHASONE. [Concomitant]
     Active Substance: DEXAMETHASONE
     Indication: ACUTE LYMPHOCYTIC LEUKAEMIA
     Dosage: 4 MG, UNK, FOR A TOTAL OF 8 DOSES
     Route: 037
  5. CYTARABINE. [Suspect]
     Active Substance: CYTARABINE
     Indication: ACUTE LYMPHOCYTIC LEUKAEMIA
     Dosage: 50 MG, UNK, FOR A TOTAL OF 8 DOSES
     Route: 037
  6. DEXAMETHASONE. [Concomitant]
     Active Substance: DEXAMETHASONE
     Dosage: 4 MG, UNK, EVERY 14 DAYS X 6
     Route: 037
  7. METHOTREXATE. [Suspect]
     Active Substance: METHOTREXATE
     Indication: ACUTE LYMPHOCYTIC LEUKAEMIA
     Dosage: 12.5 MG, UNK, FOR A TOTAL OF 8 DOSES
     Route: 037
  8. METHOTREXATE. [Suspect]
     Active Substance: METHOTREXATE
     Dosage: 12.5 MG, UNK, EVERY 14 DAYS X 6
     Route: 037

REACTIONS (3)
  - Myelopathy [Not Recovered/Not Resolved]
  - Leukoencephalopathy [Not Recovered/Not Resolved]
  - Paraplegia [Not Recovered/Not Resolved]
